FAERS Safety Report 4360521-7 (Version None)
Quarter: 2004Q2

REPORT INFORMATION
  Report Type: 
  Country: None (occurrence: None)
  Receive Date: 20040519
  Receipt Date: 20040511
  Transmission Date: 20050107
  Serious: Yes (Hospitalization)
  Sender: FDA-Public Use
  Company Number: DE-BRISTOL-MYERS SQUIBB COMPANY-12584157

PATIENT
  Age: 66 Year
  Sex: Male
  Weight: 73 kg

DRUGS (10)
  1. CARBOPLATIN [Suspect]
     Indication: PLEURAL MESOTHELIOMA
     Dosage: AUC 5- SINCE 30-JAN-04 NEXT DOSE= AUC 4 ON 01-APR-04, THEN HELD
     Dates: start: 20040312, end: 20040312
  2. ALIMTA [Suspect]
     Indication: PLEURAL MESOTHELIOMA
     Dosage: 1ST DOSE - 30JAN04 NEXT DOSE - 01APR04
     Dates: start: 20040312, end: 20040312
  3. DIGITOXIN TAB [Concomitant]
     Indication: CARDIAC FAILURE
     Route: 048
  4. PANTOZOL [Concomitant]
     Indication: PROPHYLAXIS
     Route: 048
  5. FOLIC ACID [Concomitant]
     Indication: PROPHYLAXIS
     Route: 048
  6. CODEINE [Concomitant]
     Indication: COUGH
  7. VITAMIN B-12 [Concomitant]
     Indication: PROPHYLAXIS
     Route: 030
  8. NEUPOGEN [Concomitant]
     Dates: start: 20040301
  9. DIFLUCAN [Concomitant]
     Dates: start: 20040301
  10. AMPHO-MORONAL [Concomitant]
     Indication: OESOPHAGEAL CANDIDIASIS
     Dates: start: 20040301

REACTIONS (8)
  - ANAEMIA [None]
  - ASTHENIA [None]
  - DYSPNOEA [None]
  - LEUKOPENIA [None]
  - NEUTROPENIA [None]
  - OESOPHAGEAL CANDIDIASIS [None]
  - RENAL FAILURE [None]
  - THROMBOCYTOPENIA [None]
